FAERS Safety Report 25933097 (Version 1)
Quarter: 2025Q4

REPORT INFORMATION
  Report Type: Spontaneous
  Country: US (occurrence: US)
  Receive Date: 20251017
  Receipt Date: 20251017
  Transmission Date: 20260117
  Serious: Yes (Life-Threatening, Other)
  Sender: NOVARTIS
  Company Number: US-002147023-NVSC2025US158964

PATIENT

DRUGS (1)
  1. COSENTYX [Suspect]
     Active Substance: SECUKINUMAB
     Indication: Product used for unknown indication
     Dosage: UNK
     Route: 065

REACTIONS (18)
  - Hypersensitivity [Unknown]
  - Pneumonia [Unknown]
  - Tuberculosis [Unknown]
  - Colitis ulcerative [Unknown]
  - Crohn^s disease [Unknown]
  - Anaphylactic reaction [Unknown]
  - Angioedema [Unknown]
  - Dermatitis exfoliative generalised [Unknown]
  - Inflammatory bowel disease [Unknown]
  - Fungal infection [Unknown]
  - Staphylococcal infection [Unknown]
  - Bacterial infection [Unknown]
  - Viral infection [Unknown]
  - Herpes virus infection [Unknown]
  - Candida infection [Unknown]
  - Skin reaction [Unknown]
  - Eczema [Unknown]
  - Dyshidrotic eczema [Unknown]
